FAERS Safety Report 7878431-7 (Version None)
Quarter: 2011Q4

REPORT INFORMATION
  Report Type: 
  Country: None (occurrence: None)
  Receive Date: 20111012
  Receipt Date: 20110411
  Transmission Date: 20120403
  Serious: Yes (Other)
  Sender: FDA-Public Use
  Company Number: 2011SP016292

PATIENT
  Age: 41 Year
  Sex: Female

DRUGS (3)
  1. PROVENTIL-HFA [Suspect]
     Indication: BRONCHITIS
     Dosage: 1 DF;PRN;INH
     Route: 055
     Dates: start: 20101001
  2. NORVASC [Concomitant]
  3. HYDROCHLOROTHIAZIDE [Concomitant]

REACTIONS (2)
  - DIZZINESS [None]
  - HYPERTENSION [None]
